FAERS Safety Report 12145456 (Version 2)
Quarter: 2016Q1

REPORT INFORMATION
  Report Type: Spontaneous
  Country: US (occurrence: US)
  Receive Date: 20160304
  Receipt Date: 20160309
  Transmission Date: 20160526
  Serious: No
  Sender: FDA-Public Use
  Company Number: US-BAXALTA-2016BLT001301

PATIENT
  Sex: Female
  Weight: 57.6 kg

DRUGS (6)
  1. HYQVIA [Suspect]
     Active Substance: HUMAN IMMUNOGLOBULIN G\HYALURONIDASE RECOMBINANT HUMAN
     Dosage: UNK
     Route: 058
     Dates: start: 20160301, end: 20160301
  2. HYQVIA [Suspect]
     Active Substance: HUMAN IMMUNOGLOBULIN G\HYALURONIDASE RECOMBINANT HUMAN
     Dosage: 25 G, EVERY 4 WK, MAX 240ML/HR
     Route: 058
     Dates: start: 20160109, end: 20160109
  3. HYQVIA [Suspect]
     Active Substance: HUMAN IMMUNOGLOBULIN G\HYALURONIDASE RECOMBINANT HUMAN
     Dosage: 25 G, EVERY 4 WK, MAX 240ML/HR
     Route: 058
  4. HYQVIA [Suspect]
     Active Substance: HUMAN IMMUNOGLOBULIN G\HYALURONIDASE RECOMBINANT HUMAN
     Indication: SELECTIVE IGG SUBCLASS DEFICIENCY
     Dosage: 25 G, EVERY 4 WK, MAX 240ML/HR
     Route: 058
     Dates: start: 20160301, end: 20160301
  5. HYQVIA [Suspect]
     Active Substance: HUMAN IMMUNOGLOBULIN G\HYALURONIDASE RECOMBINANT HUMAN
     Dosage: 25 G, EVERY 4 WK, MAX 240ML/HR
     Route: 058
  6. HYQVIA [Suspect]
     Active Substance: HUMAN IMMUNOGLOBULIN G\HYALURONIDASE RECOMBINANT HUMAN
     Dosage: 25 G, EVERY 4 WK
     Route: 058
     Dates: start: 20150421

REACTIONS (7)
  - Infusion site warmth [Recovered/Resolved]
  - Rash [Recovered/Resolved]
  - Infusion site extravasation [Recovered/Resolved]
  - Infusion site pruritus [Recovered/Resolved]
  - Skin irritation [Recovered/Resolved]
  - Infusion site erythema [Recovered/Resolved]
  - Swelling [Recovered/Resolved]
